FAERS Safety Report 10006297 (Version 1)
Quarter: 2014Q1

REPORT INFORMATION
  Report Type: Spontaneous
  Country: US (occurrence: US)
  Receive Date: 20140313
  Receipt Date: 20140313
  Transmission Date: 20141002
  Serious: No
  Sender: FDA-Public Use
  Company Number: US-009507513-1402USA013254

PATIENT
  Sex: Female

DRUGS (7)
  1. CORICIDIN HBP COLD AND FLU [Suspect]
     Indication: NASOPHARYNGITIS
     Dosage: UNK, UNKNOWN
     Route: 048
  2. CORICIDIN HBP COLD AND FLU [Suspect]
     Indication: INFLUENZA
  3. CORICIDIN HBP COLD AND FLU [Suspect]
     Indication: GASTROENTERITIS VIRAL
  4. CORICIDIN HBP COLD AND FLU [Suspect]
     Indication: PAIN
  5. CORICIDIN HBP COLD AND FLU [Suspect]
     Indication: SNEEZING
  6. CORICIDIN HBP COLD AND FLU [Suspect]
     Indication: NAUSEA
  7. ZOFRAN [Concomitant]
     Indication: NAUSEA
     Dosage: UNK, UNKNOWN

REACTIONS (1)
  - Drug ineffective for unapproved indication [Unknown]
